FAERS Safety Report 7788485-4 (Version None)
Quarter: 2011Q3

REPORT INFORMATION
  Report Type: 
  Country: None (occurrence: None)
  Receive Date: 20110928
  Receipt Date: 20110907
  Transmission Date: 20111222
  Serious: Yes (Other)
  Sender: FDA-Public Use
  Company Number: GER/USA/11/0021197

PATIENT
  Age: 61 Year
  Sex: Male
  Weight: 105.2 kg

DRUGS (7)
  1. TESTOSTERONE [Concomitant]
  2. SIMVASTATIN [Suspect]
     Indication: HYPERLIPIDAEMIA
     Dosage: 80 MG, 1 IN 1 D, ORAL
     Route: 048
  3. PANTORRAZOLE (PANTOPRAZOLE) [Concomitant]
  4. ASPIRIN [Concomitant]
  5. EZETIMIBE [Concomitant]
  6. CITALOPRAM HYDROBROMIDE [Suspect]
     Indication: PRODUCT USED FOR UNKNOWN INDICATION
     Dosage: 10 MG, 1 IN 1 D, ORAL
     Route: 048
  7. ATENOLOL [Concomitant]

REACTIONS (8)
  - DYSKINESIA [None]
  - SERUM FERRITIN DECREASED [None]
  - MYOCLONUS [None]
  - HICCUPS [None]
  - HYPERVENTILATION [None]
  - TRANSFERRIN SATURATION DECREASED [None]
  - IRON BINDING CAPACITY TOTAL INCREASED [None]
  - SLEEP APNOEA SYNDROME [None]
